FAERS Safety Report 22289460 (Version 1)
Quarter: 2023Q2

REPORT INFORMATION
  Report Type: Spontaneous
  Country: US (occurrence: None)
  Receive Date: 20230504
  Receipt Date: 20230504
  Transmission Date: 20230721
  Serious: Yes (Hospitalization)
  Sender: FDA-Public Use
  Company Number: None

PATIENT
  Sex: 0

DRUGS (1)
  1. INGREZZA [Suspect]
     Active Substance: VALBENAZINE
     Indication: Tardive dyskinesia
     Dosage: OTHER QUANTITY : 1 TABLET(S);?FREQUENCY : DAILY;?
     Route: 048

REACTIONS (11)
  - Inappropriate antidiuretic hormone secretion [None]
  - Blood sodium decreased [None]
  - Blood potassium decreased [None]
  - Blood chloride decreased [None]
  - Blood glucose increased [None]
  - Blood calcium decreased [None]
  - Hyponatraemia [None]
  - Seizure [None]
  - Dry mouth [None]
  - Tardive dyskinesia [None]
  - Polydipsia psychogenic [None]

NARRATIVE: CASE EVENT DATE: 20230314
